FAERS Safety Report 7125860-5 (Version None)
Quarter: 2010Q4

REPORT INFORMATION
  Report Type: 
  Country: None (occurrence: None)
  Receive Date: 20101129
  Receipt Date: 20101116
  Transmission Date: 20110411
  Serious: Yes (Other)
  Sender: FDA-Public Use
  Company Number: US-ELI_LILLY_AND_COMPANY-US201011004779

PATIENT
  Age: 62 Year
  Sex: Male

DRUGS (5)
  1. CYMBALTA [Suspect]
     Indication: DEPRESSION
     Dosage: UNK, UNKNOWN
     Route: 065
  2. CYMBALTA [Suspect]
     Dosage: 30 MG, UNKNOWN
     Dates: start: 20101101
  3. ASPIRIN [Concomitant]
     Dosage: 2 D/F, UNK
  4. NEXIUM [Concomitant]
  5. LISINOPRIL /USA/ [Concomitant]

REACTIONS (5)
  - ABDOMINAL DISCOMFORT [None]
  - ALANINE AMINOTRANSFERASE INCREASED [None]
  - BLOOD BILIRUBIN INCREASED [None]
  - DRUG EFFECT DECREASED [None]
  - MALAISE [None]
